FAERS Safety Report 24697785 (Version 3)
Quarter: 2025Q1

REPORT INFORMATION
  Report Type: Spontaneous
  Country: US (occurrence: US)
  Receive Date: 20241204
  Receipt Date: 20250310
  Transmission Date: 20250409
  Serious: No
  Sender: SANOFI AVENTIS
  Company Number: US-SA-2024SA353935

PATIENT
  Age: 59 Year
  Sex: Female

DRUGS (9)
  1. DUPIXENT [Suspect]
     Active Substance: DUPILUMAB
     Indication: Dermatitis atopic
     Route: 058
     Dates: start: 202408, end: 202408
  2. DUPIXENT [Suspect]
     Active Substance: DUPILUMAB
     Dosage: 300 MG, QOW
     Route: 058
     Dates: start: 2024, end: 202412
  3. CLOBETASOL [Concomitant]
     Active Substance: CLOBETASOL
     Route: 061
  4. CLOBETASOL [Concomitant]
     Active Substance: CLOBETASOL
     Dosage: UNK UNK, BID
     Route: 061
  5. REPATHA [Concomitant]
     Active Substance: EVOLOCUMAB
     Route: 058
  6. WEGOVY [Concomitant]
     Active Substance: SEMAGLUTIDE
     Route: 058
  7. SAVELLA [Concomitant]
     Active Substance: MILNACIPRAN HYDROCHLORIDE
     Route: 048
  8. LINZESS [Concomitant]
     Active Substance: LINACLOTIDE
     Route: 048
  9. AMLODIPINE BESYLATE\BENAZEPRIL HYDROCHLORIDE [Concomitant]
     Active Substance: AMLODIPINE BESYLATE\BENAZEPRIL HYDROCHLORIDE
     Route: 048

REACTIONS (4)
  - Malaise [Recovered/Resolved]
  - Injection site pain [Recovered/Resolved]
  - Incorrect dose administered [Recovered/Resolved]
  - Arthralgia [Recovered/Resolved]

NARRATIVE: CASE EVENT DATE: 20240101
